FAERS Safety Report 4321817-8 (Version None)
Quarter: 2004Q1

REPORT INFORMATION
  Report Type: 
  Country: None (occurrence: None)
  Receive Date: 20040322
  Receipt Date: 20040130
  Transmission Date: 20041129
  Serious: No
  Sender: FDA-Public Use
  Company Number: US-BRISTOL-MYERS SQUIBB COMPANY-12492096

PATIENT
  Age: 22 Year
  Sex: Female
  Weight: 91 kg

DRUGS (2)
  1. VAGISTAT-1 [Suspect]
     Indication: VAGINAL MYCOSIS
     Route: 067
     Dates: start: 20040126, end: 20040126
  2. PRENATAL VITAMINS [Concomitant]

REACTIONS (2)
  - PREGNANCY [None]
  - VAGINAL MYCOSIS [None]
